FAERS Safety Report 16482865 (Version 1)
Quarter: 2019Q2

REPORT INFORMATION
  Report Type: Spontaneous
  Country: US (occurrence: US)
  Receive Date: 20190627
  Receipt Date: 20190627
  Transmission Date: 20190711
  Serious: No
  Sender: FDA-Public Use
  Company Number: US-BAYER-2019-122096

PATIENT
  Age: 69 Year
  Sex: Female
  Weight: 68 kg

DRUGS (2)
  1. MIRALAX [Suspect]
     Active Substance: POLYETHYLENE GLYCOL 3350
     Indication: CONSTIPATION
     Dosage: 1 DF, QD
     Route: 048
     Dates: start: 2017, end: 20190626
  2. EX-LAX STOOL SOFTENER [Concomitant]

REACTIONS (4)
  - Product taste abnormal [None]
  - Incorrect dose administered [Unknown]
  - Product colour issue [None]
  - Product solubility abnormal [None]

NARRATIVE: CASE EVENT DATE: 20190626
